FAERS Safety Report 8477307-4 (Version None)
Quarter: 2012Q2

REPORT INFORMATION
  Report Type: 
  Country: None (occurrence: None)
  Receive Date: 20120629
  Receipt Date: 20120621
  Transmission Date: 20120825
  Serious: Yes (Hospitalization)
  Sender: FDA-Public Use
  Company Number: US-JNJFOC-20120612810

PATIENT
  Age: 62 Year
  Sex: Female
  Weight: 89.81 kg

DRUGS (3)
  1. ESTROGEN [Concomitant]
     Indication: HORMONE REPLACEMENT THERAPY
     Route: 065
     Dates: start: 19920101
  2. ROGAINE (FOR WOMEN) [Suspect]
     Indication: ALOPECIA
     Dosage: 3/4 DROPPER
     Route: 061
     Dates: start: 20120101, end: 20120101
  3. ROGAINE (FOR WOMEN) [Suspect]
     Route: 061

REACTIONS (8)
  - HYPERTENSION [None]
  - APPLICATION SITE RASH [None]
  - HEADACHE [None]
  - DYSPNOEA [None]
  - NASOPHARYNGITIS [None]
  - CHEST PAIN [None]
  - OEDEMA PERIPHERAL [None]
  - ALOPECIA [None]
